FAERS Safety Report 9108998 (Version 1)
Quarter: 2013Q1

REPORT INFORMATION
  Report Type: Report from Study
  Country: GB (occurrence: GB)
  Receive Date: 20130222
  Receipt Date: 20130222
  Transmission Date: 20140127
  Serious: Yes (Hospitalization)
  Sender: FDA-Public Use
  Company Number: GB-009507513-1302GBR007618

PATIENT
  Age: 26 Year
  Sex: Female

DRUGS (7)
  1. TEMOZOLOMIDE [Suspect]
  2. ONDANSETRON HYDROCHLORIDE [Concomitant]
     Indication: MALAISE
  3. DOMPERIDONE [Concomitant]
     Indication: MALAISE
     Dosage: UNK
  4. DOCUSATE SODIUM [Concomitant]
     Indication: CONSTIPATION
     Dosage: UNK
  5. KEPPRA [Concomitant]
     Dosage: UNK
  6. ACETAMINOPHEN [Concomitant]
     Dosage: UNK
  7. CLARITHROMYCIN [Concomitant]
     Dosage: UNK
     Dates: start: 20130131, end: 20130206

REACTIONS (4)
  - Cough [Recovered/Resolved]
  - Fatigue [Not Recovered/Not Resolved]
  - Pyrexia [Not Recovered/Not Resolved]
  - Tachycardia [Not Recovered/Not Resolved]
